FAERS Safety Report 5429739-6 (Version None)
Quarter: 2007Q3

REPORT INFORMATION
  Report Type: 
  Country: None (occurrence: None)
  Receive Date: 20070829
  Receipt Date: 20070716
  Transmission Date: 20080115
  Serious: No
  Sender: FDA-Public Use
  Company Number: A0649310A

PATIENT
  Age: 36 Year
  Sex: Male
  Weight: 70.5 kg

DRUGS (3)
  1. EPZICOM [Suspect]
     Indication: HIV INFECTION
     Dosage: 1TAB PER DAY
     Route: 048
     Dates: start: 20070301, end: 20070403
  2. MEPRON [Concomitant]
     Route: 048
     Dates: start: 20070101
  3. REYATAZ [Concomitant]
     Indication: HIV INFECTION
     Dosage: 400MG TWICE PER DAY
     Route: 048
     Dates: start: 20070301

REACTIONS (7)
  - CHILLS [None]
  - DYSPNOEA [None]
  - MALAISE [None]
  - PAIN [None]
  - PLEURITIC PAIN [None]
  - PYREXIA [None]
  - RASH [None]
